FAERS Safety Report 7557702-8 (Version None)
Quarter: 2011Q2

REPORT INFORMATION
  Report Type: 
  Country: None (occurrence: None)
  Receive Date: 20110620
  Receipt Date: 20110613
  Transmission Date: 20111010
  Serious: Yes (Other)
  Sender: FDA-Public Use
  Company Number: IT-JNJFOC-20110307840

PATIENT
  Age: 60 Year
  Sex: Male

DRUGS (6)
  1. CHLORPROMAZINE [Concomitant]
     Route: 065
  2. RISPERIDONE [Suspect]
     Indication: AGITATION
     Route: 048
  3. RISPERIDONE [Suspect]
     Indication: AGGRESSION
     Route: 048
  4. PHENOBARBITAL TAB [Concomitant]
     Route: 065
  5. OLANZAPINE [Suspect]
     Indication: ABNORMAL BEHAVIOUR
     Route: 065
  6. RISPERIDONE [Suspect]
     Indication: ABNORMAL BEHAVIOUR
     Route: 048

REACTIONS (3)
  - FALL [None]
  - SUBDURAL HYGROMA [None]
  - DRUG INEFFECTIVE [None]
